FAERS Safety Report 9236688 (Version 2)
Quarter: 2013Q2

REPORT INFORMATION
  Report Type: Spontaneous
  Country: US (occurrence: None)
  Receive Date: 20130415
  Receipt Date: 20130522
  Transmission Date: 20140414
  Serious: Yes (Death)
  Sender: FDA-Public Use
  Company Number: UTC-031376

PATIENT
  Age: 70 Year
  Sex: Female
  Weight: 47.72 kg

DRUGS (2)
  1. TYVASO [Suspect]
     Indication: PULMONARY ARTERIAL HYPERTENSION
     Dosage: 18-54 MCGS (4 I N1 D), INHALATION
     Route: 055
     Dates: start: 20110222
  2. REVATIO (SILDENAFIL CITRATE) [Concomitant]

REACTIONS (2)
  - Pulmonary arterial hypertension [None]
  - Disease progression [None]
